FAERS Safety Report 4406699-8 (Version None)
Quarter: 2004Q3

REPORT INFORMATION
  Report Type: 
  Country: None (occurrence: None)
  Receive Date: 20040715
  Receipt Date: 20040708
  Transmission Date: 20050211
  Serious: Yes (Other)
  Sender: FDA-Public Use
  Company Number: ZANA001323

PATIENT
  Sex: Male

DRUGS (1)
  1. TIZANIDINE HCL [Suspect]
     Dosage: ORAL
     Route: 048

REACTIONS (1)
  - VISUAL DISTURBANCE [None]
